FAERS Safety Report 4832580-6 (Version None)
Quarter: 2005Q4

REPORT INFORMATION
  Report Type: 
  Country: None (occurrence: None)
  Receive Date: 20051117
  Receipt Date: 20051102
  Transmission Date: 20060501
  Serious: Yes (Hospitalization)
  Sender: FDA-Public Use
  Company Number: 2005BI020159

PATIENT
  Age: 44 Year
  Sex: Female

DRUGS (2)
  1. AVONEX [Suspect]
     Indication: MULTIPLE SCLEROSIS
     Dosage: 30 UG;QW;IM
     Route: 030
     Dates: start: 20051012
  2. BETASERON [Concomitant]

REACTIONS (5)
  - CELLULITIS [None]
  - OSTEOMYELITIS [None]
  - TOOTH ABSCESS [None]
  - TOOTH INFECTION [None]
  - WHITE BLOOD CELL COUNT DECREASED [None]
